FAERS Safety Report 5874551 (Version 2)
Quarter: 2014Q3

REPORT INFORMATION
  Report Type: Spontaneous
  Country: AU (occurrence: AU)
  Receive Date: 20050908
  Receipt Date: 20140915
  Transmission Date: 20150326
  Serious: Yes (Death, Hospitalization, Other)
  Sender: FDA-Public Use
  Company Number: PHBS2005AU12975

PATIENT
  Age: 60 Year
  Sex: Female

DRUGS (3)
  1. IMATINIB [Suspect]
     Active Substance: IMATINIB
     Dosage: 600 MG/DAY
  2. IMATINIB [Suspect]
     Active Substance: IMATINIB
     Dosage: 800 MG/DAY
     Dates: end: 200402
  3. IMATINIB [Suspect]
     Active Substance: IMATINIB
     Indication: GASTROINTESTINAL STROMAL TUMOUR
     Dosage: 400 MG, BID
     Dates: start: 200105

REACTIONS (10)
  - Abdominal pain upper [Unknown]
  - Liver function test abnormal [Not Recovered/Not Resolved]
  - Intra-abdominal haemorrhage [Not Recovered/Not Resolved]
  - Haemodynamic instability [Unknown]
  - Haemoglobin decreased [Unknown]
  - Drug resistance [Not Recovered/Not Resolved]
  - Ileus paralytic [Fatal]
  - Anaemia [Unknown]
  - Malignant neoplasm progression [Not Recovered/Not Resolved]
  - Metastases to liver [Not Recovered/Not Resolved]

NARRATIVE: CASE EVENT DATE: 200305
